FAERS Safety Report 22192647 (Version 3)
Quarter: 2023Q2

REPORT INFORMATION
  Report Type: Report from Study
  Country: KR (occurrence: None)
  Receive Date: 20230410
  Receipt Date: 20230424
  Transmission Date: 20230722
  Serious: Yes (Hospitalization)
  Sender: FDA-Public Use
  Company Number: KR-ROCHE-3325881

PATIENT
  Age: 60 Year
  Sex: Male
  Weight: 94 kg

DRUGS (13)
  1. ATEZOLIZUMAB [Suspect]
     Active Substance: ATEZOLIZUMAB
     Indication: Non-small cell lung cancer metastatic
     Dosage: DOSE LAST STUDY DRUG ADMIN PRIOR AE IS 20 ML, ON 20/MAR/2023 3:46 PM START DATE OF MOST RECENT DOSE
     Route: 041
     Dates: start: 20230320
  2. SYNTHROID [Concomitant]
     Active Substance: LEVOTHYROXINE SODIUM
     Indication: Hypothyroidism
     Route: 048
     Dates: start: 2016
  3. XALATAN [Concomitant]
     Active Substance: LATANOPROST
     Dosage: 1 OTHER
     Route: 047
     Dates: start: 2014
  4. COSOPT [Concomitant]
     Active Substance: DORZOLAMIDE HYDROCHLORIDE\TIMOLOL MALEATE
     Dosage: 1 OTHER
     Route: 047
     Dates: start: 2014
  5. TAMSOL SR [Concomitant]
     Route: 048
     Dates: start: 202302
  6. HARNAL [Concomitant]
     Active Substance: TAMSULOSIN HYDROCHLORIDE
     Route: 048
     Dates: start: 20230408
  7. ACETPHEN PREMIX [Concomitant]
     Indication: Pyrexia
     Route: 042
     Dates: start: 20230406, end: 20230415
  8. VANCOMYCIN [Concomitant]
     Active Substance: VANCOMYCIN
     Indication: Pyrexia
     Route: 042
     Dates: start: 20230406, end: 20230407
  9. CEFTRIAXONE SODIUM [Concomitant]
     Active Substance: CEFTRIAXONE SODIUM
     Indication: Pyrexia
     Route: 042
     Dates: start: 20230406, end: 20230409
  10. PENBREX [Concomitant]
     Indication: Pyrexia
     Route: 042
     Dates: start: 20230406, end: 20230409
  11. NEXIUM [Concomitant]
     Active Substance: ESOMEPRAZOLE MAGNESIUM
     Route: 042
     Dates: start: 20230407, end: 20230410
  12. METOCLOPRAMIDE HYDROCHLORIDE [Concomitant]
     Active Substance: METOCLOPRAMIDE HYDROCHLORIDE
     Route: 048
     Dates: start: 20230411, end: 20230415
  13. DEXILANT [Concomitant]
     Active Substance: DEXLANSOPRAZOLE
     Route: 048
     Dates: start: 20230411

REACTIONS (1)
  - Encephalitis [Recovered/Resolved]

NARRATIVE: CASE EVENT DATE: 20230405
